FAERS Safety Report 14562818 (Version 1)
Quarter: 2018Q1

REPORT INFORMATION
  Report Type: Spontaneous
  Country: US (occurrence: US)
  Receive Date: 20180222
  Receipt Date: 20180222
  Transmission Date: 20180509
  Serious: No
  Sender: FDA-Public Use
  Company Number: US-BIOGEN-2018BI00526725

PATIENT
  Sex: Male

DRUGS (1)
  1. SPINRAZA [Suspect]
     Active Substance: NUSINERSEN
     Indication: SPINAL MUSCULAR ATROPHY
     Dosage: LD: 3 LOADING DOSES OF 12 MG, 1 PER 14 DAYS FOLLOWED BY A 4TH LOADING DOSE OF 12 MG, 30 DAYS AFTE...
     Route: 037

REACTIONS (1)
  - Neurological examination abnormal [Not Recovered/Not Resolved]
